FAERS Safety Report 25761484 (Version 1)
Quarter: 2025Q3

REPORT INFORMATION
  Report Type: Spontaneous
  Country: US (occurrence: US)
  Receive Date: 20250904
  Receipt Date: 20250904
  Transmission Date: 20251021
  Serious: No
  Sender: MEDEXUS PHARMA
  Company Number: US-MEDEXUS PHARMA, INC.-2025MED00097

PATIENT
  Age: 51 Year
  Sex: Female
  Weight: 104.76 kg

DRUGS (5)
  1. RASUVO [Suspect]
     Active Substance: METHOTREXATE SODIUM
     Indication: Polymyositis
     Dosage: 7.5 MG, 1X/DAY INTO THIGH AND STOMACH (ALTERNATING)
     Dates: start: 2024
  2. FOLIC ACID [Concomitant]
     Active Substance: FOLIC ACID
     Dosage: 25 MG, 2X/DAY
  3. DULOXETINE [Concomitant]
     Active Substance: DULOXETINE
     Dosage: 30 MG, 2X/DAY
  4. GABAPENTIN [Concomitant]
     Active Substance: GABAPENTIN
     Dosage: 30-75 MG, 3X/DAY
  5. BUPROPION [Concomitant]
     Active Substance: BUPROPION
     Dosage: UNK, 2X/DAY

REACTIONS (3)
  - Injection site bruising [Recovered/Resolved]
  - Product dose omission issue [Not Recovered/Not Resolved]
  - Off label use [Not Recovered/Not Resolved]

NARRATIVE: CASE EVENT DATE: 20250310
